FAERS Safety Report 6200492-1 (Version None)
Quarter: 2009Q2

REPORT INFORMATION
  Report Type: 
  Country: None (occurrence: None)
  Receive Date: 20090522
  Receipt Date: 20090519
  Transmission Date: 20091009
  Serious: Yes (Hospitalization)
  Sender: FDA-Public Use
  Company Number: US-AMGEN-QUU333265

PATIENT
  Sex: Female
  Weight: 78.1 kg

DRUGS (3)
  1. ENBREL [Suspect]
     Indication: PSORIATIC ARTHROPATHY
     Route: 058
     Dates: start: 20040121
  2. VITAMIN TAB [Concomitant]
  3. SYNTHROID [Concomitant]
     Route: 048

REACTIONS (2)
  - MUSCULOSKELETAL DISORDER [None]
  - PREMATURE LABOUR [None]
